FAERS Safety Report 6318798-4 (Version None)
Quarter: 2009Q3

REPORT INFORMATION
  Report Type: 
  Country: None (occurrence: None)
  Receive Date: 20090821
  Receipt Date: 20090819
  Transmission Date: 20100115
  Serious: Yes (Hospitalization)
  Sender: FDA-Public Use
  Company Number: FR-WYE-G04055109

PATIENT
  Sex: Female

DRUGS (19)
  1. TAZOCILLINE [Suspect]
     Indication: PNEUMONIA
     Route: 042
     Dates: start: 20090417, end: 20090101
  2. AMIKLIN [Suspect]
     Dosage: 2 G TOTAL DAILY
     Route: 042
     Dates: start: 20090423
  3. SECTRAL [Concomitant]
     Route: 048
  4. KENZEN [Concomitant]
     Route: 048
  5. NICARDIPINE HCL [Concomitant]
     Route: 048
  6. KAYEXALATE [Concomitant]
     Route: 048
  7. RENAGEL [Concomitant]
     Route: 048
  8. MIMPARA [Concomitant]
     Route: 048
  9. CALCIDOSE [Concomitant]
     Route: 048
  10. ZYPREXA [Concomitant]
     Route: 048
  11. SERESTA [Concomitant]
     Route: 048
  12. DEDROGYL [Concomitant]
     Route: 048
  13. FUMAFER [Concomitant]
     Route: 048
  14. ARANESP [Concomitant]
     Dosage: 30 UG TOTAL WEEKLY
     Route: 058
  15. ORGARAN [Concomitant]
     Dosage: UNKNOWN
  16. ATACAND [Concomitant]
     Dosage: UNKNOWN
     Route: 048
  17. CANCIDAS [Concomitant]
     Dosage: UNKNOWN
     Dates: start: 20090501
  18. INEXIUM [Concomitant]
     Dosage: UNKNOWN
  19. VANCOMYCIN [Suspect]
     Dosage: 1G OVER 1 HOUR AND THEN 1G TOTAL DAILY
     Route: 042
     Dates: start: 20090422

REACTIONS (9)
  - ANURIA [None]
  - DUODENAL ULCER HAEMORRHAGE [None]
  - DUODENAL ULCER PERFORATION [None]
  - HAEMOGLOBIN DECREASED [None]
  - MYOCLONIC EPILEPSY [None]
  - OVERDOSE [None]
  - PERITONITIS [None]
  - SEPTIC SHOCK [None]
  - TONIC CLONIC MOVEMENTS [None]
